FAERS Safety Report 5376060-0 (Version None)
Quarter: 2007Q3

REPORT INFORMATION
  Report Type: 
  Country: None (occurrence: None)
  Receive Date: 20070702
  Receipt Date: 20070624
  Transmission Date: 20080115
  Serious: Yes (Hospitalization)
  Sender: FDA-Public Use
  Company Number: US-AMGEN-US230941

PATIENT
  Sex: Male

DRUGS (1)
  1. ENBREL [Suspect]
     Indication: RHEUMATOID ARTHRITIS
     Route: 058
     Dates: start: 19981101

REACTIONS (9)
  - ABSCESS LIMB [None]
  - AMPUTATION REVISION [None]
  - ARTERIAL BYPASS OPERATION [None]
  - ARTHRALGIA [None]
  - JOINT SWELLING [None]
  - OSTEOMYELITIS [None]
  - STAPHYLOCOCCAL INFECTION [None]
  - SYNOVIAL CYST [None]
  - TOE AMPUTATION [None]
